FAERS Safety Report 7109047-8 (Version None)
Quarter: 2010Q4

REPORT INFORMATION
  Report Type: 
  Country: None (occurrence: None)
  Receive Date: 20101117
  Receipt Date: 20101105
  Transmission Date: 20110411
  Serious: Yes (Hospitalization)
  Sender: FDA-Public Use
  Company Number: BR-GENENTECH-296922

PATIENT
  Sex: Male
  Weight: 56.7 kg

DRUGS (21)
  1. RITUXIMAB [Suspect]
     Indication: DIFFUSE LARGE B-CELL LYMPHOMA
     Dosage: 375 MG/M2, Q21D
     Route: 042
  2. RITUXIMAB [Suspect]
     Dosage: UNK MG/ML, UNK
     Route: 042
     Dates: start: 20091002
  3. BLINDED BEVACIZUMAB [Suspect]
     Dosage: 1 UNK, QAM
     Route: 042
     Dates: start: 20091001
  4. CYCLOPHOSPHAMIDE [Suspect]
     Dosage: 1 UNK, QAM
     Route: 042
     Dates: start: 20091001
  5. DOXORUBICIN HCL [Suspect]
     Dosage: 1 UNK, QAM
     Route: 042
     Dates: start: 20091001
  6. PLACEBO [Suspect]
     Dosage: 1 UNK, QAM
     Route: 042
     Dates: start: 20091001
  7. PREDNISONE [Suspect]
     Dosage: 1 UNK, QAM
     Route: 042
     Dates: start: 20091001
  8. BLINDED RITUXIMAB [Suspect]
     Dosage: 1 UNK, QAM
     Route: 042
     Dates: start: 20091001
  9. VINCRISTINE [Suspect]
     Dosage: 1 UNK, QAM
     Route: 042
     Dates: start: 20091001
  10. CYCLOPHOSPHAMIDE [Suspect]
     Indication: DIFFUSE LARGE B-CELL LYMPHOMA
     Dosage: 750 MG/M2, Q21D
     Route: 042
  11. CYCLOPHOSPHAMIDE [Suspect]
     Dosage: UNK
     Route: 042
     Dates: start: 20091002
  12. DOXORUBICIN HCL [Suspect]
     Indication: DIFFUSE LARGE B-CELL LYMPHOMA
     Dosage: 50 MG/M2, Q21D
     Route: 042
  13. VINCRISTINE [Suspect]
     Indication: DIFFUSE LARGE B-CELL LYMPHOMA
     Dosage: 1.4 MG/M2, Q21D
     Route: 042
  14. VINCRISTINE [Suspect]
     Dosage: UNK MG/ML, UNK
     Route: 042
     Dates: start: 20091002
  15. PREDNISONE [Suspect]
     Indication: DIFFUSE LARGE B-CELL LYMPHOMA
     Dosage: 100 MG, QDX5D/21DC
     Route: 048
  16. PREDNISONE [Suspect]
     Dosage: UNK MG, UNK
     Route: 048
     Dates: start: 20091002
  17. OMEPRAZOLE [Concomitant]
     Indication: PRODUCT USED FOR UNKNOWN INDICATION
     Dosage: UNK
     Dates: start: 20091001
  18. TRIMETHOPRIM + SULFAMETHOXAZOLE [Concomitant]
     Indication: PRODUCT USED FOR UNKNOWN INDICATION
     Dosage: UNK
  19. TRIMETHOPRIM + SULFAMETHOXAZOLE [Concomitant]
     Dosage: UNK
     Dates: start: 20091001
  20. FOLIC ACID [Concomitant]
     Indication: PRODUCT USED FOR UNKNOWN INDICATION
     Dosage: UNK
     Dates: start: 20091001
  21. CAPTOPRIL [Concomitant]
     Indication: PRODUCT USED FOR UNKNOWN INDICATION
     Dosage: UNK
     Dates: start: 20100120

REACTIONS (4)
  - ABDOMINAL PAIN [None]
  - FEBRILE NEUTROPENIA [None]
  - PLATELET COUNT DECREASED [None]
  - VOMITING [None]
